FAERS Safety Report 7425395-6 (Version None)
Quarter: 2011Q2

REPORT INFORMATION
  Report Type: 
  Country: None (occurrence: None)
  Receive Date: 20110420
  Receipt Date: 20110405
  Transmission Date: 20111010
  Serious: Yes (Death)
  Sender: FDA-Public Use
  Company Number: US-CELGENEUS-163-21880-11021281

PATIENT
  Sex: Male

DRUGS (19)
  1. REVLIMID [Suspect]
     Dosage: 15 MILLIGRAM
     Route: 048
     Dates: start: 20100601
  2. REVLIMID [Suspect]
     Dosage: 5 MILLIGRAM
     Route: 048
     Dates: start: 20110101
  3. AMBIEN [Concomitant]
     Dosage: 10 MILLIGRAM
     Route: 065
  4. CALCIUM WITH VITAMIN D [Concomitant]
     Dosage: 1
     Route: 048
  5. FOLATE [Concomitant]
     Dosage: 1000 MICROGRAM
     Route: 065
  6. ASPIRIN [Concomitant]
     Dosage: 325 MILLIGRAM
     Route: 065
  7. CARDIOTABS [Concomitant]
     Dosage: 1
     Route: 048
  8. LASIX [Concomitant]
     Dosage: 40 MILLIGRAM
     Route: 065
  9. LOVAZA [Concomitant]
     Dosage: 3
     Route: 048
  10. SENNA S [Concomitant]
     Dosage: 1
     Route: 048
  11. ZOMETA [Concomitant]
     Route: 051
  12. SLO-MAG [Concomitant]
     Dosage: 1
     Route: 048
  13. REVLIMID [Suspect]
     Indication: MULTIPLE MYELOMA
     Dosage: 25 MILLIGRAM
     Route: 048
     Dates: start: 20100513
  14. CRESTOR [Concomitant]
     Dosage: 5 MILLIGRAM
     Route: 065
  15. POTASSIUM CHLORIDE [Concomitant]
     Dosage: 40 MILLIEQUIVALENTS
     Route: 065
  16. COREG [Concomitant]
     Dosage: 10 MILLIGRAM
     Route: 065
  17. PROTONIX [Concomitant]
     Dosage: 20 MILLIEQUIVALENTS
     Route: 065
  18. VITAMIN B-12 [Concomitant]
     Route: 065
  19. REVLIMID [Suspect]
     Dosage: 10 MILLIGRAM
     Route: 048
     Dates: start: 20101001

REACTIONS (3)
  - CARDIAC FAILURE [None]
  - CARDIAC ARREST [None]
  - MENINGITIS ASEPTIC [None]
